FAERS Safety Report 4890089-8 (Version None)
Quarter: 2006Q1

REPORT INFORMATION
  Report Type: 
  Country: None (occurrence: None)
  Receive Date: 20060124
  Receipt Date: 20050805
  Transmission Date: 20060701
  Serious: Yes (Hospitalization)
  Sender: FDA-Public Use
  Company Number: JP-GILEAD-2005-0008626

PATIENT
  Sex: Male

DRUGS (5)
  1. VIREAD [Suspect]
     Indication: HIV INFECTION
     Route: 048
     Dates: start: 20040301
  2. REYATAZ [Suspect]
     Indication: HIV INFECTION
     Route: 048
     Dates: start: 20040301
  3. EPIVIR [Suspect]
     Indication: HIV INFECTION
     Dates: start: 20040301
  4. NORVIR [Concomitant]
     Indication: HIV INFECTION
     Dates: start: 20050126
  5. NEO-MINOPHAGEN [Concomitant]
     Dates: start: 20040430, end: 20040512

REACTIONS (3)
  - HEPATITIS B [None]
  - HYPERBILIRUBINAEMIA [None]
  - IMMUNE RECONSTITUTION SYNDROME [None]
